FAERS Safety Report 5478821-6 (Version None)
Quarter: 2007Q4

REPORT INFORMATION
  Report Type: 
  Country: None (occurrence: None)
  Receive Date: 20071005
  Receipt Date: 20071002
  Transmission Date: 20080405
  Serious: Yes (Hospitalization)
  Sender: FDA-Public Use
  Company Number: JP-ABBOTT-07P-087-0369207-00

PATIENT
  Sex: Male
  Weight: 69 kg

DRUGS (15)
  1. KLARICID [Suspect]
     Indication: PNEUMONIA LEGIONELLA
     Route: 048
     Dates: start: 20070428, end: 20070507
  2. KLARICID [Suspect]
  3. PAZUFLOXACIN MESILATE [Suspect]
     Indication: PNEUMONIA LEGIONELLA
     Route: 042
     Dates: start: 20070427, end: 20070504
  4. PAZUFLOXACIN MESILATE [Suspect]
  5. LEVOFLOXACIN [Concomitant]
     Indication: PNEUMONIA LEGIONELLA
     Route: 048
     Dates: start: 20070504, end: 20070514
  6. LEVOFLOXACIN [Concomitant]
  7. UNACID [Concomitant]
     Indication: PNEUMONIA BACTERIAL
     Route: 042
     Dates: start: 20070426, end: 20070427
  8. DILTIAZEM HYDROCHLORIDE [Concomitant]
     Indication: PRINZMETAL ANGINA
     Route: 048
     Dates: start: 20070426
  9. NITOROL-R [Concomitant]
     Indication: PRINZMETAL ANGINA
     Route: 048
     Dates: start: 20070426
  10. ISOSORBIDE DINITRATE [Concomitant]
     Indication: PRINZMETAL ANGINA
     Route: 062
     Dates: start: 20070426
  11. OXYGEN [Concomitant]
     Indication: DRUG USE FOR UNKNOWN INDICATION
     Route: 055
     Dates: start: 20070426, end: 20070505
  12. FAMOTIDINE [Concomitant]
     Indication: MELAENA
     Route: 048
     Dates: start: 20070504
  13. CARBAZOCHROME SODIUM SULFONATE HYDRATE [Concomitant]
     Indication: MELAENA
     Route: 048
     Dates: start: 20070504, end: 20070509
  14. TRANEXAMIC ACID [Concomitant]
     Indication: MELAENA
     Route: 048
     Dates: start: 20070504, end: 20070507
  15. ASCORBIC ACID W/ CALCIUM PANTOTHENATE [Concomitant]
     Indication: MELAENA
     Route: 048
     Dates: start: 20070504, end: 20070509

REACTIONS (5)
  - ALANINE AMINOTRANSFERASE INCREASED [None]
  - ASPARTATE AMINOTRANSFERASE INCREASED [None]
  - HEPATIC FUNCTION ABNORMAL [None]
  - MELAENA [None]
  - RECTAL CANCER [None]
